FAERS Safety Report 5725327-2 (Version None)
Quarter: 2008Q2

REPORT INFORMATION
  Report Type: 
  Country: None (occurrence: None)
  Receive Date: 20080501
  Receipt Date: 20080423
  Transmission Date: 20081010
  Serious: Yes (Other)
  Sender: FDA-Public Use
  Company Number: FR-PFIZER INC-2008036031

PATIENT
  Sex: Male

DRUGS (10)
  1. TAHOR [Suspect]
     Route: 048
  2. PREVISCAN [Suspect]
     Dosage: TEXT:1.25 TABLETS
     Route: 048
  3. OFLOCET [Suspect]
     Route: 048
  4. TRAMADOL HCL [Suspect]
     Route: 048
     Dates: start: 20080120, end: 20080212
  5. BRISTOPEN [Suspect]
     Route: 048
     Dates: start: 20080122, end: 20080212
  6. ATHYMIL [Suspect]
     Route: 048
     Dates: start: 20080204, end: 20080215
  7. COLCHICINE [Suspect]
     Route: 048
     Dates: start: 20080119, end: 20080212
  8. MORPHINE SULFATE [Concomitant]
     Dates: start: 20080206, end: 20080211
  9. ACTISKENAN [Concomitant]
  10. NOVONORM [Concomitant]
     Dates: end: 20080212

REACTIONS (1)
  - INTERNATIONAL NORMALISED RATIO INCREASED [None]
